FAERS Safety Report 7090460-2 (Version None)
Quarter: 2010Q4

REPORT INFORMATION
  Report Type: 
  Country: None (occurrence: None)
  Receive Date: 20101012
  Receipt Date: 20100908
  Transmission Date: 20110411
  Serious: No
  Sender: FDA-Public Use
  Company Number: US-001291

PATIENT
  Sex: Male
  Weight: 175 kg

DRUGS (5)
  1. KUVAN [Suspect]
     Indication: PHENYLKETONURIA
     Dosage: (1700 MG QD ORAL), (800 MG QD ORAL)
     Route: 048
     Dates: start: 20100201, end: 20100701
  2. KUVAN [Suspect]
     Indication: PHENYLKETONURIA
     Dosage: (1700 MG QD ORAL), (800 MG QD ORAL)
     Route: 048
     Dates: start: 20100701, end: 20100801
  3. OMEPRAZOLE [Concomitant]
  4. ZYRTEC [Concomitant]
  5. NASONEX [Concomitant]

REACTIONS (1)
  - RASH [None]
